FAERS Safety Report 9984036 (Version 1)
Quarter: 2014Q1

REPORT INFORMATION
  Report Type: Report from Study
  Country: US (occurrence: US)
  Receive Date: 20140307
  Receipt Date: 20140307
  Transmission Date: 20141002
  Serious: No
  Sender: FDA-Public Use
  Company Number: US-ABBVIE-13P-163-1183157-00

PATIENT
  Age: 61 Year
  Sex: Female

DRUGS (20)
  1. HUMIRA [Suspect]
     Indication: COLITIS ULCERATIVE
     Dates: start: 20131119, end: 20131119
  2. HUMIRA [Suspect]
     Dates: start: 20131203, end: 20131203
  3. HUMIRA [Suspect]
     Dates: start: 20131217
  4. CRESTOR [Suspect]
     Indication: BLOOD CHOLESTEROL INCREASED
  5. CRESTOR [Suspect]
  6. HCTZ [Concomitant]
     Indication: HYPERTENSION
  7. UNKNOWN MEDICATION [Concomitant]
     Indication: HYPERTENSION
  8. CLONAZEPAM [Concomitant]
     Indication: INSOMNIA
     Dosage: AT NIGHT
  9. PRAMIPEXOLE [Concomitant]
     Indication: RESTLESS LEGS SYNDROME
     Dosage: AT NIGHT
  10. BABY ASPIRIN [Concomitant]
     Indication: PROPHYLAXIS
  11. CALCIUM [Concomitant]
     Indication: PRODUCT USED FOR UNKNOWN INDICATION
  12. MULTIVITAMIN [Concomitant]
     Indication: PRODUCT USED FOR UNKNOWN INDICATION
  13. BIOTIN [Concomitant]
     Indication: VITAMIN SUPPLEMENTATION
  14. PROBIOTICS [Concomitant]
     Indication: SUPPLEMENTATION THERAPY
  15. PREDNISONE [Concomitant]
     Indication: PRODUCT USED FOR UNKNOWN INDICATION
  16. PREDNISONE [Concomitant]
  17. PREDNISONE [Concomitant]
  18. PREDNISONE [Concomitant]
     Dates: end: 20131224
  19. CRESTOR [Concomitant]
     Indication: BLOOD CHOLESTEROL INCREASED
  20. CRESTOR [Concomitant]

REACTIONS (8)
  - Drug ineffective [Unknown]
  - Injection site bruising [Recovered/Resolved]
  - Injection site haemorrhage [Not Recovered/Not Resolved]
  - Injection site swelling [Recovered/Resolved]
  - Blood cholesterol abnormal [Unknown]
  - Injection site pruritus [Recovered/Resolved]
  - Injection site swelling [Recovered/Resolved]
  - Injection site pruritus [Recovered/Resolved]
